FAERS Safety Report 8948086 (Version 1)
Quarter: 2012Q4

REPORT INFORMATION
  Report Type: Spontaneous
  Country: DE (occurrence: None)
  Receive Date: 20121127
  Receipt Date: 20121127
  Transmission Date: 20130627
  Serious: Yes (Hospitalization)
  Sender: FDA-Public Use
  Company Number: TPA2012A08806

PATIENT
  Age: 55 Year
  Sex: Male

DRUGS (4)
  1. ADENURIC [Suspect]
     Indication: HYPERURICAEMIA
     Route: 048
     Dates: start: 20100930
  2. BISOPROLOL (BISOPROLOL) [Concomitant]
  3. VALSARTAN (VALSARTAN) [Concomitant]
  4. POTASSIUM (POTASSIUM CHLORIDE) [Concomitant]

REACTIONS (5)
  - Atrial fibrillation [None]
  - Gout [None]
  - Lipase increased [None]
  - Alanine aminotransferase increased [None]
  - Amylase increased [None]
